FAERS Safety Report 12138929 (Version 3)
Quarter: 2016Q2

REPORT INFORMATION
  Report Type: Spontaneous
  Country: US (occurrence: US)
  Receive Date: 20160302
  Receipt Date: 20160404
  Transmission Date: 20160815
  Serious: Yes (Other)
  Sender: FDA-Public Use
  Company Number: US-TEVA-638656USA

PATIENT
  Age: 24 Year
  Sex: Male

DRUGS (1)
  1. COPAXONE [Suspect]
     Active Substance: GLATIRAMER ACETATE
     Route: 058
     Dates: start: 20150916

REACTIONS (7)
  - Neuropathy peripheral [Unknown]
  - Blindness [Unknown]
  - Drug dose omission [Unknown]
  - Central nervous system lesion [Unknown]
  - Pregnancy of partner [Unknown]
  - Multiple sclerosis relapse [Unknown]
  - Muscle twitching [Unknown]

NARRATIVE: CASE EVENT DATE: 20160101
